FAERS Safety Report 5741124-6 (Version None)
Quarter: 2008Q2

REPORT INFORMATION
  Report Type: 
  Country: None (occurrence: None)
  Receive Date: 20080516
  Receipt Date: 20080508
  Transmission Date: 20081010
  Serious: Yes (Hospitalization)
  Sender: FDA-Public Use
  Company Number: AU-PFIZER INC-2008040343

PATIENT
  Sex: Male
  Weight: 58 kg

DRUGS (6)
  1. ZELDOX (CAPSULES) [Suspect]
  2. OLANZAPINE [Suspect]
  3. LITHIUM CARBONATE [Concomitant]
  4. DOTHEP [Concomitant]
  5. BENZOTROPINE [Concomitant]
  6. IMOVANE [Concomitant]

REACTIONS (4)
  - CIRCULATORY COLLAPSE [None]
  - FALL [None]
  - SPEECH DISORDER [None]
  - TREMOR [None]
